FAERS Safety Report 5814791-6 (Version None)
Quarter: 2008Q3

REPORT INFORMATION
  Report Type: 
  Country: None (occurrence: None)
  Receive Date: 20080718
  Receipt Date: 20080707
  Transmission Date: 20090109
  Serious: Yes (Hospitalization)
  Sender: FDA-Public Use
  Company Number: JP-AMGEN-US292920

PATIENT
  Sex: Male

DRUGS (3)
  1. PANITUMUMAB [Suspect]
     Indication: SQUAMOUS CELL CARCINOMA
     Route: 042
     Dates: start: 20080515
  2. CARBOPLATIN [Concomitant]
     Route: 065
     Dates: start: 20080611
  3. FLUOROURACIL [Concomitant]
     Route: 065
     Dates: start: 20080515

REACTIONS (1)
  - INTERSTITIAL LUNG DISEASE [None]
